FAERS Safety Report 15563604 (Version 1)
Quarter: 2018Q4

REPORT INFORMATION
  Report Type: Spontaneous
  Country: US (occurrence: US)
  Receive Date: 20181029
  Receipt Date: 20181029
  Transmission Date: 20190205
  Serious: No
  Sender: FDA-Public Use
  Company Number: US-SA-2018SA297781

PATIENT
  Sex: Female

DRUGS (2)
  1. REPATHA [Concomitant]
     Active Substance: EVOLOCUMAB
  2. PRALUENT [Suspect]
     Active Substance: ALIROCUMAB
     Indication: HYPERLIPIDAEMIA
     Dosage: 75 MG, QOW
     Route: 058

REACTIONS (1)
  - Back pain [Unknown]
